FAERS Safety Report 5145730-1 (Version None)
Quarter: 2006Q4

REPORT INFORMATION
  Report Type: 
  Country: None (occurrence: None)
  Receive Date: 20060915
  Receipt Date: 20060126
  Transmission Date: 20070319
  Serious: Yes (Other)
  Sender: FDA-Public Use
  Company Number: 2006012936

PATIENT
  Sex: Female
  Weight: 58.9676 kg

DRUGS (3)
  1. GLUCOTROL XL [Suspect]
     Indication: BLOOD GLUCOSE ABNORMAL
     Dosage: 5 MG (5 MG, 1 IN 1 D),ORAL
     Route: 048
     Dates: end: 20060101
  2. GLUCOTROL [Suspect]
     Indication: BLOOD GLUCOSE ABNORMAL
     Dosage: (2.5 MG),ORAL
     Route: 048
     Dates: start: 20060120
  3. TENORMIN [Concomitant]

REACTIONS (5)
  - BLOOD GLUCOSE DECREASED [None]
  - DIZZINESS [None]
  - PARAESTHESIA [None]
  - WEIGHT DECREASED [None]
  - WEIGHT INCREASED [None]
